FAERS Safety Report 5067199-8 (Version None)
Quarter: 2006Q3

REPORT INFORMATION
  Report Type: 
  Country: None (occurrence: None)
  Receive Date: 20060726
  Receipt Date: 20060717
  Transmission Date: 20061208
  Serious: Yes (Hospitalization, Other)
  Sender: FDA-Public Use
  Company Number: DEWYE203617JUL06

PATIENT
  Sex: Female

DRUGS (3)
  1. VENLAFAXINE HCL [Suspect]
     Indication: ANXIETY
     Dosage: 75 MG 2X PER 1 DAY
     Dates: start: 20031124, end: 20050731
  2. VENLAFAXINE HCL [Suspect]
     Indication: DEPRESSION
     Dosage: 75 MG 2X PER 1 DAY
     Dates: start: 20031124, end: 20050731
  3. VENLAFAXINE HCL [Suspect]
     Indication: PANIC ATTACK
     Dosage: 75 MG 2X PER 1 DAY
     Dates: start: 20031124, end: 20050731

REACTIONS (3)
  - DRUG EXPOSURE DURING PREGNANCY [None]
  - IDIOPATHIC THROMBOCYTOPENIC PURPURA [None]
  - THROMBOCYTOPENIA NEONATAL [None]
